FAERS Safety Report 6648428-3 (Version None)
Quarter: 2010Q1

REPORT INFORMATION
  Report Type: 
  Country: None (occurrence: None)
  Receive Date: 20100324
  Receipt Date: 20100309
  Transmission Date: 20100710
  Serious: Yes (Other)
  Sender: FDA-Public Use
  Company Number: US-ROCHE-692588

PATIENT
  Age: 71 Year
  Sex: Female

DRUGS (5)
  1. BONIVA [Suspect]
     Indication: DRUG USE FOR UNKNOWN INDICATION
     Route: 048
     Dates: start: 20091201
  2. HYDROCHLOROTHIAZIDE [Concomitant]
  3. CLONIDINE [Concomitant]
     Dosage: DRUG REPORTED: CLONADINE
  4. LISINOPRIL [Concomitant]
  5. AMLODIPINE [Concomitant]

REACTIONS (1)
  - PAIN IN JAW [None]
